FAERS Safety Report 16060379 (Version 2)
Quarter: 2019Q1

REPORT INFORMATION
  Report Type: Spontaneous
  Country: BR (occurrence: BR)
  Receive Date: 20190312
  Receipt Date: 20190314
  Transmission Date: 20190418
  Serious: Yes (Other)
  Sender: FDA-Public Use
  Company Number: BR-MYLANLABS-2019M1023192

PATIENT
  Sex: Male

DRUGS (1)
  1. LEPONEX 25 MG [Suspect]
     Active Substance: CLOZAPINE
     Indication: PRODUCT USED FOR UNKNOWN INDICATION
     Dosage: UNK

REACTIONS (7)
  - Libido decreased [Recovering/Resolving]
  - Pneumonia [Unknown]
  - Immune system disorder [Unknown]
  - Neoplasm malignant [Unknown]
  - Bronchitis [Unknown]
  - Hyperhidrosis [Unknown]
  - Pericarditis [Unknown]
